FAERS Safety Report 19520005 (Version 1)
Quarter: 2021Q3

REPORT INFORMATION
  Report Type: Other
  Country: CA (occurrence: CA)
  Receive Date: 20210712
  Receipt Date: 20210712
  Transmission Date: 20211014
  Serious: Yes (Hospitalization)
  Sender: FDA-Public Use
  Company Number: CA-INTERCEPT-PM2021002129

PATIENT
  Age: 61 Year
  Sex: Female

DRUGS (2)
  1. OCALIVA [Suspect]
     Active Substance: OBETICHOLIC ACID
     Indication: PRIMARY BILIARY CHOLANGITIS
     Dosage: 5 MILLIGRAM, 2X/WK
     Route: 048
     Dates: start: 20210613, end: 202106
  2. URSO [Concomitant]
     Active Substance: URSODIOL
     Dosage: 1500 MILLIGRAM, QD
     Dates: start: 2007

REACTIONS (4)
  - Vomiting [Recovered/Resolved]
  - Nausea [Recovered/Resolved]
  - Abdominal pain [Recovered/Resolved]
  - Echocardiogram [Unknown]

NARRATIVE: CASE EVENT DATE: 202106
